FAERS Safety Report 8580882-2 (Version None)
Quarter: 2012Q3

REPORT INFORMATION
  Report Type: 
  Country: None (occurrence: None)
  Receive Date: 20120726
  Receipt Date: 20120711
  Transmission Date: 20120928
  Serious: Yes (Other)
  Sender: FDA-Public Use
  Company Number: 2012000179

PATIENT
  Sex: Male

DRUGS (5)
  1. BISOPROLOL FUMARATE [Concomitant]
  2. ACEON [Suspect]
     Indication: PRODUCT USED FOR UNKNOWN INDICATION
     Dosage: 2 MG, QD, ORAL
     Route: 048
     Dates: start: 20070101
  3. ASPIRIN [Concomitant]
  4. METFORMIN HYDROCHLORIDE [Concomitant]
  5. SIMVASTATIN [Concomitant]

REACTIONS (1)
  - HEART RATE IRREGULAR [None]
